FAERS Safety Report 8771571 (Version 3)
Quarter: 2013Q2

REPORT INFORMATION
  Report Type: Spontaneous
  Country: US (occurrence: US)
  Receive Date: 20120905
  Receipt Date: 20130411
  Transmission Date: 20140414
  Serious: Yes (Hospitalization, Disabling, Other)
  Sender: FDA-Public Use
  Company Number: US-009507513-1111USA00502

PATIENT
  Sex: Female

DRUGS (4)
  1. FOSAMAX [Suspect]
     Indication: OSTEOPOROSIS
     Dosage: 70 MG, QW
     Route: 048
     Dates: start: 2002, end: 20100114
  2. FOSAMAX [Suspect]
     Indication: OSTEOPENIA
     Dosage: 35 MG, QW
     Route: 048
  3. FOSAMAX PLUS D [Suspect]
     Indication: OSTEOPOROSIS
     Dosage: 70-2800 MG
     Route: 048
     Dates: start: 2002, end: 20100114
  4. FOSAMAX PLUS D [Suspect]
     Indication: FOOT FRACTURE

REACTIONS (36)
  - Tooth abscess [Unknown]
  - Subcutaneous abscess [Unknown]
  - Abscess jaw [Unknown]
  - Abscess oral [Unknown]
  - Bone debridement [Unknown]
  - Breast cancer [Unknown]
  - Transient ischaemic attack [Unknown]
  - Osteonecrosis of jaw [Not Recovered/Not Resolved]
  - Osteomyelitis [Unknown]
  - Tooth disorder [Unknown]
  - Infection [Unknown]
  - Ear infection [Unknown]
  - Neuralgia [Unknown]
  - Gingival infection [Unknown]
  - Tinea infection [Unknown]
  - Sinus disorder [Unknown]
  - Arthritis [Not Recovered/Not Resolved]
  - Tooth infection [Not Recovered/Not Resolved]
  - Post procedural fistula [Unknown]
  - Oral discomfort [Unknown]
  - Tooth disorder [Unknown]
  - Cellulitis [Unknown]
  - Haemorrhoids [Unknown]
  - Diverticulum [Unknown]
  - Large intestine polyp [Unknown]
  - Adenoma benign [Unknown]
  - Rosacea [Unknown]
  - Hypoaesthesia [Unknown]
  - Trismus [Unknown]
  - Tooth disorder [Unknown]
  - Incisional drainage [Unknown]
  - Tooth extraction [Unknown]
  - Pain in jaw [Unknown]
  - Nausea [Unknown]
  - Diarrhoea [Unknown]
  - Off label use [Unknown]
